FAERS Safety Report 5096804-5 (Version None)
Quarter: 2006Q3

REPORT INFORMATION
  Report Type: 
  Country: None (occurrence: None)
  Receive Date: 20060831
  Receipt Date: 20060823
  Transmission Date: 20061208
  Serious: Yes (Hospitalization, Other)
  Sender: FDA-Public Use
  Company Number: 2006097737

PATIENT
  Age: 53 Year
  Sex: Female
  Weight: 54.1 kg

DRUGS (3)
  1. LYRICA [Suspect]
     Indication: RADICULAR PAIN
     Dosage: 150 MG (75 MG, 2 IN 1 D), ORAL
     Route: 048
     Dates: start: 20060601, end: 20060623
  2. FORTECORTIN (DEXAMETHASONE) [Concomitant]
  3. NOVALGIN (METAMIZOLE SODIUM) [Concomitant]

REACTIONS (7)
  - AGGRESSION [None]
  - ARRHYTHMIA [None]
  - HALLUCINATION, AUDITORY [None]
  - NERVOUSNESS [None]
  - PERSONALITY CHANGE [None]
  - PSYCHOTIC DISORDER [None]
  - TACHYCARDIA [None]
